FAERS Safety Report 16566695 (Version 1)
Quarter: 2019Q3

REPORT INFORMATION
  Report Type: Spontaneous
  Country: GB (occurrence: GB)
  Receive Date: 20190712
  Receipt Date: 20190712
  Transmission Date: 20191004
  Serious: Yes (Hospitalization)
  Sender: FDA-Public Use
  Company Number: GB-PFIZER INC-2019290680

PATIENT
  Age: 41 Year
  Sex: Female

DRUGS (9)
  1. FERROUS GLUCONATE [Concomitant]
     Active Substance: FERROUS GLUCONATE
     Dosage: 600 MG, 1X/DAY
     Route: 048
  2. DESOGESTREL [Concomitant]
     Active Substance: DESOGESTREL
     Dosage: 75 UG, 1X/DAY
     Route: 048
  3. BETAMETHASONE DIPROPIONATE/CALCIPOTRIOL [Concomitant]
     Dosage: 1 DF, 1X/DAY,CALCIPOTRIOL 0.005% / BETAMETHASONE DIPROPIONATE 0.05%
     Route: 061
  4. SERTRALINE HCL [Suspect]
     Active Substance: SERTRALINE HYDROCHLORIDE
     Dosage: 50 MG, ONCE A DAY
     Route: 048
     Dates: start: 20190501, end: 20190605
  5. DERMOL 500 LOTION [Concomitant]
     Dosage: AS NECESSARY
     Route: 061
  6. ACICLOVIR [Suspect]
     Active Substance: ACYCLOVIR
     Indication: VARICELLA ZOSTER VIRUS INFECTION
     Dosage: UNK
  7. COAL TAR. [Concomitant]
     Active Substance: COAL TAR
     Dosage: AS NECESSARY
     Route: 061
  8. PROMETHAZINE HYDROCHLORIDE. [Suspect]
     Active Substance: PROMETHAZINE HYDROCHLORIDE
     Indication: PRURITUS
     Dosage: 25 MG, AS NECESSARY, 1-2 AT NIGHT.
     Route: 048
     Dates: end: 20190608
  9. FLUCLOXACILLIN [Suspect]
     Active Substance: FLUCLOXACILLIN
     Indication: IMPETIGO
     Dosage: 4 G, ONCE A DAY
     Route: 042
     Dates: start: 20190606, end: 20190608

REACTIONS (2)
  - Liver function test abnormal [Recovering/Resolving]
  - Pustular psoriasis [Not Recovered/Not Resolved]

NARRATIVE: CASE EVENT DATE: 20190605
